FAERS Safety Report 12587119 (Version 5)
Quarter: 2018Q4

REPORT INFORMATION
  Report Type: Spontaneous
  Country: PL (occurrence: PL)
  Receive Date: 20160725
  Receipt Date: 20181012
  Transmission Date: 20190204
  Serious: Yes (Other)
  Sender: FDA-Public Use
  Company Number: PL-ROCHE-1799151

PATIENT
  Age: 12 Year
  Sex: Male

DRUGS (6)
  1. MYCOPHENOLATE MOFETIL. [Interacting]
     Active Substance: MYCOPHENOLATE MOFETIL
     Indication: NEPHROTIC SYNDROME
     Dosage: MMF 2 X 1000 MG
     Route: 065
     Dates: start: 2013
  2. MYCOPHENOLATE MOFETIL. [Interacting]
     Active Substance: MYCOPHENOLATE MOFETIL
     Indication: NEPHROTIC SYNDROME
  3. RITUXIMAB. [Suspect]
     Active Substance: RITUXIMAB
     Indication: NEPHROTIC SYNDROME
     Dosage: TWO DOSES OF 375 MG/M2 WITH 1 WEEK BETWEEN DOSES
     Route: 042
     Dates: start: 201408
  4. CICLOSPORIN A [Concomitant]
     Active Substance: CYCLOSPORINE
     Indication: NEPHROTIC SYNDROME
  5. METHYLPREDNISOLONE. [Concomitant]
     Active Substance: METHYLPREDNISOLONE
     Indication: NEPHROTIC SYNDROME
     Route: 065
     Dates: start: 201401
  6. PREDNISONE. [Concomitant]
     Active Substance: PREDNISONE
     Indication: NEPHROTIC SYNDROME
     Route: 065

REACTIONS (4)
  - Intentional product use issue [Unknown]
  - Neutrophil Pelger-Huet anomaly present [Recovered/Resolved]
  - Off label use [Unknown]
  - Drug interaction [Unknown]
